FAERS Safety Report 9900084 (Version 1)
Quarter: 2014Q1

REPORT INFORMATION
  Report Type: Spontaneous
  Country: BE (occurrence: BE)
  Receive Date: 20140214
  Receipt Date: 20140214
  Transmission Date: 20141002
  Serious: Yes (Other)
  Sender: FDA-Public Use
  Company Number: BE-BAXTER-2014BAX006800

PATIENT
  Age: 59 Year
  Sex: Male

DRUGS (9)
  1. CYCLOPHOSPHAMIDE FOR INJECTION, USP [Suspect]
     Indication: SMALL CELL LUNG CANCER
     Dosage: 1 G/M2, ON DAY 1
     Route: 065
  2. CYCLOPHOSPHAMIDE FOR INJECTION, USP [Suspect]
     Route: 065
  3. CELLTOP_ETOPOSIDE 20.00 MG/ML_SOLUTION FOR INJECTION_VIAL, GLASS [Suspect]
     Indication: SMALL CELL LUNG CANCER
     Dosage: DAY 1, 2, 3
     Route: 065
  4. CELLTOP_ETOPOSIDE 20.00 MG/ML_SOLUTION FOR INJECTION_VIAL, GLASS [Suspect]
     Dosage: 1.5 G/M2
     Route: 065
  5. UROMITEXAN 100MG/ML, SOLUTION INJECTABLE [Suspect]
     Indication: ADJUVANT THERAPY
     Route: 065
  6. UROMITEXAN 100MG/ML, SOLUTION INJECTABLE [Suspect]
     Indication: SMALL CELL LUNG CANCER
  7. CISPLATIN [Suspect]
     Indication: SMALL CELL LUNG CANCER
     Dosage: ON DAY 1
     Route: 065
  8. ADRIAMYCIN [Suspect]
     Indication: SMALL CELL LUNG CANCER
     Dosage: ON DAY 1
     Route: 065
  9. METOCLOPRAMIDE [Suspect]
     Indication: ANTIEMETIC SUPPORTIVE CARE
     Route: 065

REACTIONS (3)
  - Bone marrow failure [Recovered/Resolved]
  - Pneumococcal bacteraemia [Recovered/Resolved]
  - Atrioventricular block second degree [Recovered/Resolved]
